FAERS Safety Report 4490126-9 (Version None)
Quarter: 2004Q4

REPORT INFORMATION
  Report Type: 
  Country: None (occurrence: None)
  Receive Date: 20041101
  Receipt Date: 20041026
  Transmission Date: 20050328
  Serious: Yes (Disabling)
  Sender: FDA-Public Use
  Company Number: PHBS2004IT14382

PATIENT
  Age: 53 Year
  Sex: Female

DRUGS (2)
  1. ZOMETA [Suspect]
     Indication: METASTASES TO BONE
     Dosage: 4 MG MONTHLY
     Route: 042
     Dates: start: 20030303, end: 20040801
  2. FEMARA [Concomitant]
     Dosage: 2.5 MG/D
     Route: 048

REACTIONS (3)
  - OSTEOMYELITIS CHRONIC [None]
  - TOOTH EXTRACTION [None]
  - TOOTH INFECTION [None]
